FAERS Safety Report 24457292 (Version 2)
Quarter: 2024Q4

REPORT INFORMATION
  Report Type: Spontaneous
  Country: US (occurrence: US)
  Receive Date: 20241018
  Receipt Date: 20241112
  Transmission Date: 20250115
  Serious: No
  Sender: JOHNSON AND JOHNSON
  Company Number: US-JNJFOC-20241026508

PATIENT
  Age: 46 Year
  Sex: Male

DRUGS (5)
  1. OPSUMIT [Suspect]
     Active Substance: MACITENTAN
     Indication: Product used for unknown indication
     Route: 048
     Dates: start: 20221230
  2. TYVASO [Suspect]
     Active Substance: TREPROSTINIL
     Indication: Pulmonary arterial hypertension
     Dosage: CONCENTRATION OF 0.6 MG/ML) DELIVERED BY TYVASO INHALATION DEVICE (TD-300/A)
     Route: 055
     Dates: start: 202212
  3. TYVASO [Suspect]
     Active Substance: TREPROSTINIL
     Dosage: C
     Route: 055
  4. ADCIRCA [Suspect]
     Active Substance: TADALAFIL
     Indication: Pulmonary arterial hypertension
     Route: 048
     Dates: start: 202212
  5. PONATINIB [Suspect]
     Active Substance: PONATINIB
     Indication: Product used for unknown indication
     Route: 065

REACTIONS (10)
  - Dizziness [Unknown]
  - Dizziness [Unknown]
  - Hypotension [Unknown]
  - Hypoacusis [Unknown]
  - Flushing [Unknown]
  - Memory impairment [Unknown]
  - General physical health deterioration [Unknown]
  - Chest pain [Unknown]
  - Extra dose administered [Unknown]
  - Malaise [Unknown]

NARRATIVE: CASE EVENT DATE: 20240930
